FAERS Safety Report 7964708-3 (Version None)
Quarter: 2011Q4

REPORT INFORMATION
  Report Type: 
  Country: None (occurrence: None)
  Receive Date: 20111208
  Receipt Date: 20111202
  Transmission Date: 20120403
  Serious: Yes (Other)
  Sender: FDA-Public Use
  Company Number: JP-PFIZER INC-2011253009

PATIENT
  Age: 42 Year
  Sex: Male
  Weight: 72.3 kg

DRUGS (17)
  1. SUNITINIB MALATE [Suspect]
     Indication: RENAL CELL CARCINOMA
     Dosage: 50 MG, 1X/DAY
     Dates: start: 20090504, end: 20090519
  2. PURSENNID [Concomitant]
     Indication: CONSTIPATION
     Dosage: 24 MG, 1X/DAY
     Route: 048
     Dates: start: 20090505, end: 20090608
  3. SUNITINIB MALATE [Suspect]
     Dosage: 50 MG, 1X/DAY
     Dates: start: 20090727, end: 20090823
  4. LEVOTHYROXINE SODIUM [Concomitant]
     Dosage: 50 UG, 1X/DAY
     Route: 048
     Dates: start: 20090522
  5. FAMOTIDINE [Concomitant]
     Indication: PROPHYLAXIS
     Dosage: 20 MG, 1X/DAY
     Route: 048
     Dates: start: 20090518
  6. UREPEARL [Concomitant]
     Dosage: UNK
     Route: 061
     Dates: start: 20090527
  7. SODIUM BICARBONATE [Concomitant]
     Dosage: UNK
     Dates: start: 20090710
  8. ZOMETA [Suspect]
     Indication: RENAL CELL CARCINOMA
     Dosage: 4 MG, MONTHLY
     Route: 041
  9. DEXAMETHASONE [Concomitant]
     Dosage: UNK
     Route: 061
     Dates: start: 20090709
  10. SUNITINIB MALATE [Suspect]
     Dosage: 50 MG, 1X/DAY
     Dates: start: 20090615, end: 20090708
  11. LAC B [Concomitant]
     Dosage: 1 G, 3X/DAY
     Route: 048
     Dates: start: 20090709, end: 20090711
  12. SUNITINIB MALATE [Suspect]
     Dosage: UNK
     Dates: start: 20090907, end: 20111004
  13. SUNITINIB MALATE [Suspect]
     Dosage: 50 MG, 1X/DAY
     Dates: start: 20090523, end: 20090531
  14. MAGMITT [Concomitant]
     Indication: CONSTIPATION
     Dosage: 330 MG, 3X/DAY
     Route: 048
  15. DECADRON [Concomitant]
     Indication: RENAL CELL CARCINOMA
     Dosage: 1 MG, 1X/DAY
     Route: 048
     Dates: start: 20090518
  16. MOTILIUM [Concomitant]
     Dosage: 1 DF, 1X/DAY
     Route: 054
     Dates: start: 20090708, end: 20090711
  17. PRIMPERAN TAB [Concomitant]
     Dosage: 5 MG, 1X/DAY
     Dates: start: 20090710, end: 20090711

REACTIONS (1)
  - OSTEONECROSIS OF JAW [None]
